FAERS Safety Report 7063124-9 (Version None)
Quarter: 2010Q4

REPORT INFORMATION
  Report Type: 
  Country: None (occurrence: None)
  Receive Date: 20101026
  Receipt Date: 20100518
  Transmission Date: 20110411
  Serious: No
  Sender: FDA-Public Use
  Company Number: US-PFIZER INC-2010062899

PATIENT
  Sex: Male

DRUGS (5)
  1. LIPITOR [Suspect]
     Dosage: 40 MG, UNK
  2. LIPITOR [Suspect]
     Dosage: 80 MG, UNK
  3. NIACIN [Suspect]
  4. ZETIA [Suspect]
  5. FISH OIL [Suspect]

REACTIONS (1)
  - MYALGIA [None]
